FAERS Safety Report 9787890 (Version 1)
Quarter: 2013Q4

REPORT INFORMATION
  Report Type: Spontaneous
  Country: US (occurrence: None)
  Receive Date: 20131227
  Receipt Date: 20131227
  Transmission Date: 20140711
  Serious: Yes (Hospitalization)
  Sender: FDA-Public Use
  Company Number: None

PATIENT
  Age: 24 Year
  Sex: Male
  Weight: 128.37 kg

DRUGS (6)
  1. SERTRALINE 50MG-GENERIC FOR }ZOLOFT FOR 9 DAYS THAN 100MG 5DAYS [Suspect]
     Indication: DEPRESSION
     Dosage: STRENGTH: ZOLOFT 50MG+100MG?QUANTITY:PILLS?FREQUENCY:1 A DAY?HOW WAS IT TAKEN OR USED: BY MOUTH?
     Route: 048
     Dates: start: 20131001, end: 201310
  2. CITALOPRAM 20MG GENERIC FOR CELEXA 4 WEEKS [Suspect]
     Dates: start: 20130902, end: 20130930
  3. METFORMIN [Concomitant]
  4. CLONAZEPA [Concomitant]
  5. TRAMA-DOL [Concomitant]
  6. ADVIL [Concomitant]

REACTIONS (29)
  - Drug ineffective [None]
  - Suicide attempt [None]
  - Flushing [None]
  - Appetite disorder [None]
  - Flatulence [None]
  - Nausea [None]
  - Dyspepsia [None]
  - Diarrhoea [None]
  - Constipation [None]
  - Dry mouth [None]
  - Hyperhidrosis [None]
  - Headache [None]
  - Somnolence [None]
  - Insomnia [None]
  - Vision blurred [None]
  - Tremor [None]
  - Tremor [None]
  - Agitation [None]
  - Restlessness [None]
  - Dizziness [None]
  - Palpitations [None]
  - Heart rate irregular [None]
  - Heart rate increased [None]
  - Rash [None]
  - Pruritus [None]
  - Urticaria [None]
  - Agitation [None]
  - Feeling abnormal [None]
  - Fatigue [None]
